FAERS Safety Report 24636051 (Version 1)
Quarter: 2024Q4

REPORT INFORMATION
  Report Type: Spontaneous
  Country: US (occurrence: US)
  Receive Date: 20241119
  Receipt Date: 20241119
  Transmission Date: 20250114
  Serious: No
  Sender: TEVA
  Company Number: US-TEVA-VS-3260937

PATIENT
  Age: 61 Year
  Sex: Female

DRUGS (1)
  1. UZEDY [Suspect]
     Active Substance: RISPERIDONE
     Indication: Bipolar disorder
     Dosage: 100/0.28 MG/ML
     Route: 065

REACTIONS (2)
  - Injection site nodule [Unknown]
  - Product use in unapproved indication [Unknown]
